FAERS Safety Report 21521441 (Version 1)
Quarter: 2022Q4

REPORT INFORMATION
  Report Type: Report from Study
  Country: IQ (occurrence: IQ)
  Receive Date: 20221028
  Receipt Date: 20221028
  Transmission Date: 20230113
  Serious: Yes (Other)
  Sender: FDA-Public Use
  Company Number: IQ-BAYER-2022A132338

PATIENT
  Age: 23 Year
  Sex: Female

DRUGS (1)
  1. NEXAVAR [Suspect]
     Active Substance: SORAFENIB
     Dosage: UNK
     Dates: start: 202202

REACTIONS (9)
  - Dental necrosis [None]
  - Dental necrosis [None]
  - Pneumonia [Recovered/Resolved with Sequelae]
  - Fatigue [Recovered/Resolved with Sequelae]
  - Skin exfoliation [None]
  - Feeling hot [None]
  - Back pain [None]
  - Muscle spasms [None]
  - Decreased appetite [None]

NARRATIVE: CASE EVENT DATE: 20220301
